FAERS Safety Report 18955394 (Version 1)
Quarter: 2021Q1

REPORT INFORMATION
  Report Type: Not Available
  Country: None (occurrence: None)
  Receive Date: 20210301
  Receipt Date: 20210301
  Transmission Date: 20210420
  Serious: No
  Sender: FDA-Public Use
  Company Number: US-AKORN-162471

PATIENT
  Sex: Male

DRUGS (1)
  1. LACTULOSE SOLUTION, USP [Suspect]
     Active Substance: LACTULOSE

REACTIONS (1)
  - Drug ineffective [Recovered/Resolved]
